FAERS Safety Report 6811410-7 (Version None)
Quarter: 2010Q2

REPORT INFORMATION
  Report Type: 
  Country: None (occurrence: None)
  Receive Date: 20100630
  Receipt Date: 20100412
  Transmission Date: 20101027
  Serious: No
  Sender: FDA-Public Use
  Company Number: US-AMGEN-KDL406393

PATIENT
  Sex: Male
  Weight: 122.6 kg

DRUGS (5)
  1. PROCRIT [Suspect]
     Indication: DRUG USE FOR UNKNOWN INDICATION
     Route: 058
     Dates: start: 20090301
  2. COUMADIN [Concomitant]
  3. INSULIN [Concomitant]
  4. INVIRASE [Concomitant]
  5. ABACAVIR [Concomitant]

REACTIONS (4)
  - ANAEMIA [None]
  - BLOOD COUNT ABNORMAL [None]
  - INJECTION SITE HAEMATOMA [None]
  - VITAMIN D DEFICIENCY [None]
